FAERS Safety Report 16716279 (Version 1)
Quarter: 2019Q3

REPORT INFORMATION
  Report Type: Spontaneous
  Country: JP (occurrence: JP)
  Receive Date: 20190819
  Receipt Date: 20190819
  Transmission Date: 20191005
  Serious: Yes (Hospitalization)
  Sender: FDA-Public Use
  Company Number: JP-TERSERA THERAPEUTICS LLC-2019TRS001515

PATIENT

DRUGS (1)
  1. ZOLADEX [Suspect]
     Active Substance: GOSERELIN ACETATE
     Indication: PROSTATE CANCER
     Dosage: 10.8 MG, TOTAL 4 DOSES
     Route: 058

REACTIONS (3)
  - Dysstasia [Recovered/Resolved]
  - Gait inability [Recovered/Resolved]
  - Femoral neck fracture [Recovered/Resolved]
